FAERS Safety Report 6278490-1 (Version None)
Quarter: 2009Q3

REPORT INFORMATION
  Report Type: 
  Country: None (occurrence: None)
  Receive Date: 20090721
  Receipt Date: 20090707
  Transmission Date: 20100115
  Serious: Yes (Hospitalization)
  Sender: FDA-Public Use
  Company Number: 230256K09CAN

PATIENT
  Age: 48 Year
  Sex: Male
  Weight: 75 kg

DRUGS (4)
  1. REBIF [Suspect]
     Indication: RELAPSING-REMITTING MULTIPLE SCLEROSIS
     Dosage: 44 MCG, 3 IN 1 WEEKS, SUBCUTANEOUS
     Route: 058
     Dates: start: 20070522
  2. ARTHROTEC [Concomitant]
  3. RITALIN [Concomitant]
  4. VITAMIN D [Concomitant]

REACTIONS (2)
  - ACUTE CORONARY SYNDROME [None]
  - ANGINA PECTORIS [None]
